FAERS Safety Report 16236327 (Version 1)
Quarter: 2019Q2

REPORT INFORMATION
  Report Type: Spontaneous
  Country: US (occurrence: US)
  Receive Date: 20190425
  Receipt Date: 20190425
  Transmission Date: 20190711
  Serious: No
  Sender: FDA-Public Use
  Company Number: US-BRISTOL-MYERS SQUIBB COMPANY-BMS-2019-041224

PATIENT
  Age: 31 Year
  Sex: Male

DRUGS (1)
  1. NIVOLUMAB [Suspect]
     Active Substance: NIVOLUMAB
     Indication: MESOTHELIOMA
     Dosage: UNK
     Route: 065

REACTIONS (2)
  - Vasculitis [Recovered/Resolved]
  - Product use in unapproved indication [Unknown]
